FAERS Safety Report 4288452-1 (Version None)
Quarter: 2004Q1

REPORT INFORMATION
  Report Type: 
  Country: None (occurrence: None)
  Receive Date: 20040205
  Receipt Date: 20040123
  Transmission Date: 20041129
  Serious: Yes (Other)
  Sender: FDA-Public Use
  Company Number: 2004005040

PATIENT
  Age: 84 Year
  Sex: Male
  Weight: 108.8633 kg

DRUGS (9)
  1. NEURONTIN [Suspect]
     Indication: FATIGUE
     Dosage: ORAL
     Route: 048
  2. NEURONTIN [Suspect]
     Indication: NEUROPATHY
     Dosage: ORAL
     Route: 048
  3. NEURONTIN [Suspect]
     Indication: PAIN
     Dosage: ORAL
     Route: 048
  4. METFORMIN HCL [Concomitant]
  5. TAMSULOSIN HYDROCHLORIDE (TAMSULOSIN HYDROCHLORIDE) [Concomitant]
  6. LANSOPRAZOLE [Concomitant]
  7. ACETYLSALICYLIC ACID SRT [Concomitant]
  8. ATORVASTATIN CALCIUM [Concomitant]
  9. GLIMEPIRIDE [Concomitant]

REACTIONS (4)
  - CONDITION AGGRAVATED [None]
  - FATIGUE [None]
  - NEUROPATHY [None]
  - RASH [None]
